FAERS Safety Report 5624951-5 (Version None)
Quarter: 2008Q1

REPORT INFORMATION
  Report Type: 
  Country: None (occurrence: None)
  Receive Date: 20080213
  Receipt Date: 20080201
  Transmission Date: 20080703
  Serious: Yes (Other)
  Sender: FDA-Public Use
  Company Number: BE-PFIZER INC-2007107351

PATIENT
  Sex: Female
  Weight: 65 kg

DRUGS (1)
  1. CHANTIX [Suspect]
     Indication: EX-SMOKER
     Dates: start: 20071101, end: 20071105

REACTIONS (5)
  - DRY MOUTH [None]
  - DYSGEUSIA [None]
  - LYMPHADENOPATHY [None]
  - SALIVARY GLAND PAIN [None]
  - STOMATITIS [None]
